FAERS Safety Report 10522976 (Version 2)
Quarter: 2014Q4

REPORT INFORMATION
  Report Type: Spontaneous
  Country: US (occurrence: US)
  Receive Date: 20141016
  Receipt Date: 20141016
  Transmission Date: 20150528
  Serious: Yes (Hospitalization, Other)
  Sender: FDA-Public Use
  Company Number: US-GLAXOSMITHKLINE-B0698095A

PATIENT
  Age: 65 Year
  Sex: Female

DRUGS (1)
  1. AVANDAMET [Suspect]
     Active Substance: METFORMIN HYDROCHLORIDE\ROSIGLITAZONE MALEATE
     Indication: DIABETES MELLITUS
     Dosage: 4/1000MG BID
     Route: 048
     Dates: start: 200103, end: 201003

REACTIONS (2)
  - Cerebrovascular accident [Recovered/Resolved]
  - Cerebellar infarction [Unknown]

NARRATIVE: CASE EVENT DATE: 20090318
